FAERS Safety Report 17888561 (Version 1)
Quarter: 2020Q2

REPORT INFORMATION
  Report Type: Other
  Country: DE (occurrence: DE)
  Receive Date: 20200612
  Receipt Date: 20200612
  Transmission Date: 20200714
  Serious: Yes (Congenital Anomaly, Other)
  Sender: FDA-Public Use
  Company Number: DE-LUPIN PHARMACEUTICALS INC.-2020-02725

PATIENT
  Age: 0 Day
  Sex: Female
  Weight: 3.06 kg

DRUGS (6)
  1. MOVICOL [Concomitant]
     Active Substance: POLYETHYLENE GLYCOL 3350\POTASSIUM CHLORIDE\SODIUM BICARBONATE\SODIUM CHLORIDE
     Indication: CONSTIPATION
     Dosage: UNK (HAD BEEN TAKEN UNTIL GW 12 5/7)
     Route: 064
     Dates: start: 20190225, end: 20190525
  2. QUETIAPINE FUMARATE. [Suspect]
     Active Substance: QUETIAPINE FUMARATE
     Indication: PSYCHOTIC DISORDER
     Dosage: 150 MILLIGRAM, QD (150 [MG/D (BIS 50) ]/ DOSAGE WAS SLOWLY REDUCED UNTIL GW 12 5/7)
     Route: 064
     Dates: start: 20190225
  3. QUETIAPINE FUMARATE. [Suspect]
     Active Substance: QUETIAPINE FUMARATE
     Dosage: 50 MILLIGRAM, QD (150 [MG/D (BIS 50)]/ DOSAGE WAS SLOWLY REDUCED UNTIL GW 12 5/7)
     Route: 064
     Dates: end: 20190525
  4. CLEXANE [Concomitant]
     Active Substance: ENOXAPARIN SODIUM
     Indication: FACTOR V DEFICIENCY
     Dosage: UNK (4000 [IE/D ])
     Route: 064
     Dates: start: 20191024, end: 20191127
  5. ABILIFY [Suspect]
     Active Substance: ARIPIPRAZOLE
     Indication: PSYCHOTIC DISORDER
     Dosage: 15 MILLIGRAM, QD
     Route: 064
     Dates: start: 20190225, end: 20191127
  6. FOLIO FORTE [Concomitant]
     Active Substance: FOLIC ACID\VITAMINS
     Indication: PROPHYLAXIS OF NEURAL TUBE DEFECT
     Dosage: 0.8 MILLIGRAM (MG/D (BIS 0.4) )
     Route: 064
     Dates: start: 20190225, end: 20191127

REACTIONS (3)
  - Foetal exposure during pregnancy [Unknown]
  - Pulmonary valve stenosis congenital [Unknown]
  - Oxygen saturation decreased [Recovered/Resolved]

NARRATIVE: CASE EVENT DATE: 20191127
